FAERS Safety Report 17857384 (Version 2)
Quarter: 2020Q3

REPORT INFORMATION
  Report Type: Report from Study
  Country: JP (occurrence: JP)
  Receive Date: 20200603
  Receipt Date: 20200831
  Transmission Date: 20201103
  Serious: Yes (Other)
  Sender: FDA-Public Use
  Company Number: JP-BRISTOL-MYERS SQUIBB COMPANY-BMS-2020-042994

PATIENT
  Age: 9 Year
  Sex: Female
  Weight: 25 kg

DRUGS (28)
  1. ABATACEPT [Suspect]
     Active Substance: ABATACEPT
     Dosage: 10 MILLIGRAM/KILOGRAM
     Route: 041
     Dates: start: 20181227, end: 20181227
  2. PREDNISOLONE. [Suspect]
     Active Substance: PREDNISOLONE
     Indication: JUVENILE IDIOPATHIC ARTHRITIS
     Dosage: 12 MILLIGRAM
     Route: 048
     Dates: end: 20180525
  3. PREDNISOLONE. [Suspect]
     Active Substance: PREDNISOLONE
     Dosage: 4 MILLIGRAM
     Route: 048
     Dates: start: 20180915, end: 20181019
  4. PROGRAF [Suspect]
     Active Substance: TACROLIMUS
     Indication: JUVENILE IDIOPATHIC ARTHRITIS
     Dosage: 1.8 MILLIGRAM
     Route: 048
  5. ABATACEPT [Suspect]
     Active Substance: ABATACEPT
     Indication: JUVENILE IDIOPATHIC ARTHRITIS
     Dosage: 10 MILLIGRAM/KILOGRAM
     Route: 041
     Dates: start: 20180507, end: 20180507
  6. ABATACEPT [Suspect]
     Active Substance: ABATACEPT
     Dosage: 10 MILLIGRAM/KILOGRAM
     Route: 041
     Dates: start: 20190524, end: 20190524
  7. NAIXAN [NAPROXEN SODIUM] [Concomitant]
     Indication: JUVENILE IDIOPATHIC ARTHRITIS
     Dosage: 200 MILLIGRAM
     Route: 048
     Dates: end: 20180809
  8. ABATACEPT [Suspect]
     Active Substance: ABATACEPT
     Dosage: 10 MILLIGRAM/KILOGRAM
     Route: 041
     Dates: start: 20180608, end: 20180608
  9. ABATACEPT [Suspect]
     Active Substance: ABATACEPT
     Dosage: 10 MILLIGRAM/KILOGRAM
     Route: 041
     Dates: start: 20181019, end: 20181019
  10. ABATACEPT [Suspect]
     Active Substance: ABATACEPT
     Dosage: 10 MILLIGRAM/KILOGRAM
     Route: 041
     Dates: start: 20190422, end: 20190422
  11. FAMOTIDINE. [Concomitant]
     Active Substance: FAMOTIDINE
     Indication: PROPHYLAXIS
     Dosage: 5 MILLIGRAM
     Route: 048
     Dates: end: 20180814
  12. ABATACEPT [Suspect]
     Active Substance: ABATACEPT
     Dosage: 10 MILLIGRAM/KILOGRAM
     Route: 041
     Dates: start: 20180525, end: 20180525
  13. PREDNISOLONE. [Suspect]
     Active Substance: PREDNISOLONE
     Dosage: 10 MILLIGRAM
     Route: 048
     Dates: start: 20180526, end: 20180608
  14. PREDNISOLONE. [Suspect]
     Active Substance: PREDNISOLONE
     Dosage: 8 MILLIGRAM
     Route: 048
     Dates: start: 20180609, end: 20180706
  15. ABATACEPT [Suspect]
     Active Substance: ABATACEPT
     Dosage: 10 MILLIGRAM/KILOGRAM
     Route: 041
     Dates: start: 20180914, end: 20180914
  16. ABATACEPT [Suspect]
     Active Substance: ABATACEPT
     Dosage: 10 MILLIGRAM/KILOGRAM
     Route: 041
     Dates: start: 20190222, end: 20190222
  17. ABATACEPT [Suspect]
     Active Substance: ABATACEPT
     Dosage: 10 MILLIGRAM/KILOGRAM
     Route: 041
     Dates: start: 20190617
  18. PREDNISOLONE. [Suspect]
     Active Substance: PREDNISOLONE
     Dosage: 2 MILLIGRAM
     Route: 048
     Dates: start: 20181123
  19. ABATACEPT [Suspect]
     Active Substance: ABATACEPT
     Dosage: 10 MILLIGRAM/KILOGRAM
     Route: 041
     Dates: start: 20180706, end: 20180706
  20. ABATACEPT [Suspect]
     Active Substance: ABATACEPT
     Dosage: 10 MILLIGRAM/KILOGRAM
     Route: 041
     Dates: start: 20181122, end: 20181122
  21. ABATACEPT [Suspect]
     Active Substance: ABATACEPT
     Dosage: 10 MILLIGRAM/KILOGRAM
     Route: 041
     Dates: start: 20190322, end: 20190322
  22. PREDNISOLONE. [Suspect]
     Active Substance: PREDNISOLONE
     Dosage: 3 MILLIGRAM
     Route: 048
     Dates: start: 20181020, end: 20181122
  23. ABATACEPT [Suspect]
     Active Substance: ABATACEPT
     Dosage: 10 MILLIGRAM/KILOGRAM
     Route: 041
     Dates: start: 20180809, end: 20180809
  24. ABATACEPT [Suspect]
     Active Substance: ABATACEPT
     Dosage: 10 MILLIGRAM/KILOGRAM
     Route: 041
     Dates: start: 20190124, end: 20190124
  25. PREDNISOLONE. [Suspect]
     Active Substance: PREDNISOLONE
     Dosage: 6 MILLIGRAM
     Route: 048
     Dates: start: 20180707, end: 20180809
  26. PREDNISOLONE. [Suspect]
     Active Substance: PREDNISOLONE
     Dosage: 5 MILLIGRAM
     Route: 048
     Dates: start: 20180810, end: 20180914
  27. ALFAROL [Concomitant]
     Active Substance: ALFACALCIDOL
     Indication: PROPHYLAXIS
     Dosage: 0.6 MILLILITER
     Route: 048
  28. INCREMIN C IRON [Concomitant]
     Indication: PRODUCT USED FOR UNKNOWN INDICATION
     Dosage: 9 MILLILITER
     Route: 048
     Dates: start: 20180507, end: 20180607

REACTIONS (3)
  - Fungal oesophagitis [Recovering/Resolving]
  - Gastrooesophageal reflux disease [Recovering/Resolving]
  - Bronchitis [Recovered/Resolved]

NARRATIVE: CASE EVENT DATE: 20180815
